FAERS Safety Report 15256468 (Version 23)
Quarter: 2020Q1

REPORT INFORMATION
  Report Type: Report from Study
  Country: IT (occurrence: IT)
  Receive Date: 20180808
  Receipt Date: 20200207
  Transmission Date: 20200409
  Serious: Yes (Death, Life-Threatening, Hospitalization)
  Sender: FDA-Public Use
  Company Number: IT-ROCHE-2165560

PATIENT
  Age: 53 Year
  Sex: Female
  Weight: 62 kg

DRUGS (13)
  1. RANITIDINE. [Concomitant]
     Active Substance: RANITIDINE
     Indication: PREMEDICATION
     Route: 065
     Dates: start: 20180704
  2. DELTACORTENE [Concomitant]
     Active Substance: PREDNISONE
  3. ATEZOLIZUMAB. [Suspect]
     Active Substance: ATEZOLIZUMAB
     Indication: TRIPLE NEGATIVE BREAST CANCER
     Dosage: ON 25/JUL/2018, THE PATIENT RECEIVED THE MOST RECENT DOSE OF ATEZOLIZUMAB PRIOR TO ONSET OF THE EVEN
     Route: 042
     Dates: start: 20180704
  4. FOLIC ACID. [Concomitant]
     Active Substance: FOLIC ACID
     Indication: PROPHYLAXIS
     Route: 065
     Dates: end: 20180802
  5. GRANISETRON [Concomitant]
     Active Substance: GRANISETRON
     Indication: PREMEDICATION
     Route: 065
     Dates: start: 20180704
  6. DESAMETASONE [Concomitant]
     Active Substance: DEXAMETHASONE
     Route: 065
     Dates: start: 20180725, end: 20180725
  7. LANSOPRAZOLE. [Concomitant]
     Active Substance: LANSOPRAZOLE
     Indication: PROPHYLAXIS
  8. CALCIUM CARBONATE;CALCIUM GLUCONATE [Concomitant]
     Route: 065
     Dates: start: 20180720
  9. CARBOPLATIN. [Suspect]
     Active Substance: CARBOPLATIN
     Indication: TRIPLE NEGATIVE BREAST CANCER
     Dosage: ON 25/JUL/2018, THE PATIENT RECEIVED THE MOST RECENT DOSE OF CARBOPLATIN (270 MG) PRIOR TO ONSET OF
     Route: 042
     Dates: start: 20180704
  10. GEMCITABINE. [Suspect]
     Active Substance: GEMCITABINE
     Indication: TRIPLE NEGATIVE BREAST CANCER
     Dosage: ON 25/JUL/2018, THE PATIENT RECEIVED THE MOST RECENT DOSE OF GEMCITABINE (1000 MG/M^2) PRIOR TO ONSE
     Route: 042
     Dates: start: 20180704
  11. DESAMETASONE [Concomitant]
     Active Substance: DEXAMETHASONE
     Indication: PREMEDICATION
     Route: 065
     Dates: start: 20180704, end: 20180704
  12. ZOFRAN [Concomitant]
     Active Substance: ONDANSETRON HYDROCHLORIDE
     Indication: ACUTE KIDNEY INJURY
     Route: 065
     Dates: start: 20180708, end: 20180708
  13. PARACETAMOL [Concomitant]
     Active Substance: ACETAMINOPHEN
     Indication: ACUTE KIDNEY INJURY
     Route: 042
     Dates: start: 20180724

REACTIONS (3)
  - Thrombocytopenia [Not Recovered/Not Resolved]
  - Sepsis [Fatal]
  - Acute kidney injury [Not Recovered/Not Resolved]

NARRATIVE: CASE EVENT DATE: 20180802
